FAERS Safety Report 12732863 (Version 1)
Quarter: 2016Q3

REPORT INFORMATION
  Report Type: Spontaneous
  Country: US (occurrence: US)
  Receive Date: 20160911
  Receipt Date: 20160911
  Transmission Date: 20161109
  Serious: Yes (Other)
  Sender: FDA-Public Use
  Company Number: None

PATIENT
  Age: 76 Year
  Sex: Male
  Weight: 72 kg

DRUGS (4)
  1. AVASTIN [Concomitant]
     Active Substance: BEVACIZUMAB
  2. 5 FU [Concomitant]
     Active Substance: FLUOROURACIL
  3. OXYPLATINUM [Concomitant]
  4. IRENOTECAN [Suspect]
     Active Substance: IRINOTECAN
     Indication: COLON CANCER
     Dosage: OTHER STRENGTH:;OTHER DOSE:;OTHER FREQUENCY:EVERY TWO WEEKS;OTHER ROUTE:
     Route: 041
     Dates: start: 20160718, end: 20160829

REACTIONS (2)
  - Proctitis [None]
  - Urethritis [None]

NARRATIVE: CASE EVENT DATE: 20160902
